FAERS Safety Report 5488034-X (Version None)
Quarter: 2007Q4

REPORT INFORMATION
  Report Type: 
  Country: None (occurrence: None)
  Receive Date: 20071017
  Receipt Date: 20071009
  Transmission Date: 20080405
  Serious: Yes (Hospitalization)
  Sender: FDA-Public Use
  Company Number: DE-JNJFOC-20071002119

PATIENT
  Age: 73 Year
  Sex: Female

DRUGS (2)
  1. REMINYL [Suspect]
  2. REMINYL [Suspect]
     Indication: DEMENTIA ALZHEIMER'S TYPE

REACTIONS (3)
  - DEPRESSED MOOD [None]
  - DIZZINESS [None]
  - GAIT DISTURBANCE [None]
